FAERS Safety Report 8256708-3 (Version None)
Quarter: 2012Q2

REPORT INFORMATION
  Report Type: 
  Country: None (occurrence: None)
  Receive Date: 20120403
  Receipt Date: 20120402
  Transmission Date: 20120825
  Serious: No
  Sender: FDA-Public Use
  Company Number: US-PFIZER INC-2012083304

PATIENT
  Sex: Female
  Weight: 72.562 kg

DRUGS (5)
  1. CHANTIX [Suspect]
     Indication: SMOKING CESSATION THERAPY
     Dosage: 0.5 MG, 1X/DAY
     Route: 048
     Dates: start: 20120330
  2. VITAMIN D [Concomitant]
     Dosage: UNK
  3. TRILIPIX [Concomitant]
     Dosage: UNK
  4. CYCLOBENZAPRINE [Concomitant]
     Dosage: UNK
  5. HYDROCODONE [Concomitant]
     Dosage: UNK

REACTIONS (1)
  - HEADACHE [None]
